FAERS Safety Report 14301310 (Version 1)
Quarter: 2017Q4

REPORT INFORMATION
  Report Type: Spontaneous
  Country: US (occurrence: US)
  Receive Date: 20171218
  Receipt Date: 20171218
  Transmission Date: 20180321
  Serious: No
  Sender: FDA-Public Use
  Company Number: None

PATIENT
  Sex: Female
  Weight: 67.5 kg

DRUGS (9)
  1. PREMARIN [Suspect]
     Active Substance: ESTROGENS, CONJUGATED
     Indication: HOT FLUSH
     Dosage: ?          QUANTITY:1 TABLET(S);?
     Route: 048
     Dates: start: 20171216, end: 20171217
  2. ALIVE! WOMEN^S 50+ MULTIVITAMIN [Concomitant]
  3. VYVANSE [Concomitant]
     Active Substance: LISDEXAMFETAMINE DIMESYLATE
  4. AMITIZA [Concomitant]
     Active Substance: LUBIPROSTONE
  5. GUANFACINE HCL ER [Concomitant]
     Active Substance: GUANFACINE HYDROCHLORIDE
  6. RENEW LIFE WOMEN^S CARE ULTIMATE FLORA PROBIOTIC [Concomitant]
  7. MONTELUKAST SOD [Concomitant]
     Active Substance: MONTELUKAST SODIUM
  8. LEVOTHYROXINE. [Concomitant]
     Active Substance: LEVOTHYROXINE
  9. OMEPRAZOLE DR [Concomitant]
     Active Substance: OMEPRAZOLE

REACTIONS (4)
  - Drug hypersensitivity [None]
  - Livedo reticularis [None]
  - Urticaria [None]
  - Pruritus [None]

NARRATIVE: CASE EVENT DATE: 20171217
